FAERS Safety Report 7769625-X (Version None)
Quarter: 2011Q3

REPORT INFORMATION
  Report Type: 
  Country: None (occurrence: None)
  Receive Date: 20110922
  Receipt Date: 20101207
  Transmission Date: 20111222
  Serious: No
  Sender: FDA-Public Use
  Company Number: US-ASTRAZENECA-2010SE56790

PATIENT
  Age: 53 Year
  Sex: Female
  Weight: 76.2 kg

DRUGS (12)
  1. SEROQUEL [Suspect]
     Indication: BIPOLAR DISORDER
     Route: 048
     Dates: start: 20060101, end: 20100601
  2. SEROQUEL [Suspect]
     Route: 048
     Dates: start: 20100601, end: 20101101
  3. OXCARBAZEPINE [Concomitant]
     Indication: BIPOLAR DISORDER
  4. SEROQUEL [Suspect]
     Route: 048
  5. SEROQUEL [Suspect]
     Route: 048
  6. XANAX [Concomitant]
  7. SEROQUEL [Suspect]
     Route: 048
  8. SEROQUEL [Suspect]
     Route: 048
  9. SEROQUEL [Suspect]
     Route: 048
     Dates: start: 20100601, end: 20101101
  10. SEROQUEL [Suspect]
     Route: 048
     Dates: start: 20101101
  11. SEROQUEL [Suspect]
     Indication: SLEEP DISORDER
     Route: 048
     Dates: start: 20060101, end: 20100601
  12. SEROQUEL [Suspect]
     Route: 048
     Dates: start: 20101101

REACTIONS (5)
  - HANGOVER [None]
  - DRUG DOSE OMISSION [None]
  - SOMNOLENCE [None]
  - WRONG TECHNIQUE IN DRUG USAGE PROCESS [None]
  - DRUG INEFFECTIVE [None]
